FAERS Safety Report 9603259 (Version 3)
Quarter: 2013Q4

REPORT INFORMATION
  Report Type: Report from Study
  Country: US (occurrence: US)
  Receive Date: 20131007
  Receipt Date: 20131018
  Transmission Date: 20140711
  Serious: Yes (Hospitalization)
  Sender: FDA-Public Use
  Company Number: US-ACTELION-A-US2013-82466

PATIENT
  Age: 40 Year
  Sex: Female

DRUGS (5)
  1. VELETRI [Suspect]
     Indication: PULMONARY ARTERIAL HYPERTENSION
     Dosage: 52 NG/KG, UNK
     Route: 042
     Dates: start: 20091124
  2. VELETRI [Suspect]
     Dosage: 50 NG/KG, PER MIN
     Route: 042
     Dates: start: 20110120
  3. SPIRONOLACTONE [Suspect]
  4. SILDENAFIL [Concomitant]
  5. COUMADIN [Concomitant]

REACTIONS (3)
  - Pulmonary arterial hypertension [Unknown]
  - Renal failure [Recovered/Resolved]
  - Hyperkalaemia [Recovered/Resolved]
